FAERS Safety Report 7628179-9 (Version None)
Quarter: 2011Q3

REPORT INFORMATION
  Report Type: 
  Country: None (occurrence: None)
  Receive Date: 20110720
  Receipt Date: 20110720
  Transmission Date: 20111222
  Serious: Yes (Other)
  Sender: FDA-Public Use
  Company Number: None

PATIENT
  Age: 40 Year
  Sex: Female
  Weight: 166.9237 kg

DRUGS (3)
  1. SERTRALINE HYDROCHLORIDE [Suspect]
     Indication: PANIC REACTION
     Dosage: NOT SURE OF DOSE BUT WAS ORAL BEFORE 11/01/07
     Route: 048
  2. SERTRALINE HYDROCHLORIDE [Suspect]
     Indication: AGORAPHOBIA
     Dosage: NOT SURE OF DOSE BUT WAS ORAL BEFORE 11/01/07
     Route: 048
  3. SERTRALINE HYDROCHLORIDE [Suspect]
     Indication: MAJOR DEPRESSION
     Dosage: NOT SURE OF DOSE BUT WAS ORAL BEFORE 11/01/07
     Route: 048

REACTIONS (3)
  - PRODUCT SUBSTITUTION ISSUE [None]
  - VOMITING [None]
  - NAUSEA [None]
